FAERS Safety Report 15518873 (Version 2)
Quarter: 2022Q1

REPORT INFORMATION
  Report Type: Spontaneous
  Country: CZ (occurrence: CZ)
  Receive Date: 20181017
  Receipt Date: 20220208
  Transmission Date: 20220424
  Serious: Yes (Hospitalization, Other)
  Sender: FDA-Public Use
  Company Number: ICHICSR-EVHUMAN_10000232092

PATIENT
  Age: 60 Year
  Sex: Male

DRUGS (23)
  1. GENTAMICIN SULFATE [Suspect]
     Active Substance: GENTAMICIN SULFATE
     Indication: Endocarditis
     Dosage: UNK UNK,UNK
     Route: 065
     Dates: start: 2017, end: 2017
  2. GENTAMICIN SULFATE [Suspect]
     Active Substance: GENTAMICIN SULFATE
     Indication: Enterococcal infection
  3. LINEZOLID [Suspect]
     Active Substance: LINEZOLID
     Indication: Enterococcal infection
     Dosage: UNK UNK,UNK
     Route: 065
     Dates: start: 2017, end: 2017
  4. LINEZOLID [Suspect]
     Active Substance: LINEZOLID
     Indication: Arthritis
  5. LINEZOLID [Suspect]
     Active Substance: LINEZOLID
     Indication: Endocarditis
  6. AMPICILLIN [Suspect]
     Active Substance: AMPICILLIN
     Indication: Arthritis
     Dosage: UNK UNK,UNK
     Route: 065
     Dates: start: 2017, end: 2017
  7. AMPICILLIN [Suspect]
     Active Substance: AMPICILLIN
     Indication: Endocarditis
     Dosage: UNK
     Dates: start: 2017, end: 2017
  8. AMPICILLIN [Suspect]
     Active Substance: AMPICILLIN
     Indication: Enterococcal infection
  9. AMPICILLIN SODIUM\SULBACTAM SODIUM [Suspect]
     Active Substance: AMPICILLIN SODIUM\SULBACTAM SODIUM
     Indication: Enterococcal infection
     Dosage: UNK UNK,UNK
     Route: 065
     Dates: start: 2017, end: 2017
  10. AMPICILLIN SODIUM\SULBACTAM SODIUM [Suspect]
     Active Substance: AMPICILLIN SODIUM\SULBACTAM SODIUM
     Indication: Endocarditis
  11. PIPERACILLIN SODIUM\TAZOBACTAM SODIUM [Suspect]
     Active Substance: PIPERACILLIN SODIUM\TAZOBACTAM SODIUM
     Indication: Endocarditis
     Dosage: UNK UNK,UNK
     Route: 065
     Dates: start: 2017, end: 2017
  12. PIPERACILLIN SODIUM\TAZOBACTAM SODIUM [Suspect]
     Active Substance: PIPERACILLIN SODIUM\TAZOBACTAM SODIUM
     Indication: Enterococcal infection
  13. CIPROFLOXACIN [Suspect]
     Active Substance: CIPROFLOXACIN
     Indication: Salmonella test positive
     Dosage: 500 MG,TID
     Route: 048
     Dates: start: 20170519, end: 2017
  14. CIPROFLOXACIN [Suspect]
     Active Substance: CIPROFLOXACIN
     Indication: Endocarditis
     Dosage: GIVEN AFTER DIIARRHOEA
     Dates: start: 2017
  15. CIPROFLOXACIN [Suspect]
     Active Substance: CIPROFLOXACIN
     Indication: Evidence based treatment
  16. CIPROFLOXACIN [Suspect]
     Active Substance: CIPROFLOXACIN
     Indication: Antibiotic therapy
  17. ENOXAPARIN SODIUM [Suspect]
     Active Substance: ENOXAPARIN SODIUM
     Indication: Deep vein thrombosis
     Dosage: THERAPEUTUC DOSE
     Route: 058
     Dates: start: 2017, end: 2017
  18. ENOXAPARIN SODIUM [Suspect]
     Active Substance: ENOXAPARIN SODIUM
     Indication: Haematoma muscle
     Dosage: INITIAL PREVENTIVE DOSE
     Dates: start: 2017, end: 2017
  19. ENOXAPARIN SODIUM [Suspect]
     Active Substance: ENOXAPARIN SODIUM
     Dosage: REDUCED DOSE
     Dates: start: 2017
  20. VANCOMYCIN HYDROCHLORIDE [Suspect]
     Active Substance: VANCOMYCIN HYDROCHLORIDE
     Indication: Salmonella test positive
     Dosage: 1.5 G,Q12H
     Route: 042
     Dates: start: 20170519, end: 2017
  21. VANCOMYCIN HYDROCHLORIDE [Suspect]
     Active Substance: VANCOMYCIN HYDROCHLORIDE
     Indication: Evidence based treatment
     Dosage: MONOTHERAPPY
     Dates: start: 2017, end: 2017
  22. VANCOMYCIN HYDROCHLORIDE [Suspect]
     Active Substance: VANCOMYCIN HYDROCHLORIDE
     Indication: Endocarditis
     Dosage: POST DIARRHOEA
     Dates: start: 2017
  23. VANCOMYCIN HYDROCHLORIDE [Suspect]
     Active Substance: VANCOMYCIN HYDROCHLORIDE
     Indication: Antibiotic therapy

REACTIONS (9)
  - Weight decreased [Unknown]
  - Decreased appetite [Recovered/Resolved]
  - Nutritional condition abnormal [Recovering/Resolving]
  - Hepatotoxicity [Recovered/Resolved]
  - Coagulopathy [Recovered/Resolved]
  - Epistaxis [Recovered/Resolved]
  - Diarrhoea [Recovered/Resolved]
  - Dysbiosis [Recovered/Resolved]
  - Liver function test increased [Recovered/Resolved]

NARRATIVE: CASE EVENT DATE: 20170101
